FAERS Safety Report 6840135-7 (Version None)
Quarter: 2010Q3

REPORT INFORMATION
  Report Type: 
  Country: None (occurrence: None)
  Receive Date: 20100713
  Receipt Date: 20100713
  Transmission Date: 20110219
  Serious: Yes (Life-Threatening, Hospitalization, Other)
  Sender: FDA-Public Use
  Company Number: None

PATIENT
  Sex: Male
  Weight: 68.0396 kg

DRUGS (1)
  1. SEROQUEL [Suspect]
     Dosage: 400 MG BEDTIME 2
     Dates: start: 20081102

REACTIONS (2)
  - BALANCE DISORDER [None]
  - HEART RATE INCREASED [None]
